FAERS Safety Report 21722469 (Version 1)
Quarter: 2022Q4

REPORT INFORMATION
  Report Type: Spontaneous
  Country: CA (occurrence: CA)
  Receive Date: 20221213
  Receipt Date: 20221213
  Transmission Date: 20230112
  Serious: Yes (Other)
  Sender: FDA-Public Use
  Company Number: CA-TEVA-2022-CA-2834224

PATIENT
  Sex: Male

DRUGS (2)
  1. TAMOXIFEN CITRATE [Suspect]
     Active Substance: TAMOXIFEN CITRATE
     Indication: Breast cancer male
     Route: 065
  2. TAMOXIFEN CITRATE [Suspect]
     Active Substance: TAMOXIFEN CITRATE
     Route: 065

REACTIONS (5)
  - Erectile dysfunction [Unknown]
  - Hot flush [Unknown]
  - Libido decreased [Unknown]
  - Pulmonary embolism [Unknown]
  - Weight increased [Unknown]
